FAERS Safety Report 13080818 (Version 1)
Quarter: 2017Q1

REPORT INFORMATION
  Report Type: Report from Study
  Country: ZA (occurrence: ZA)
  Receive Date: 20170103
  Receipt Date: 20170103
  Transmission Date: 20170428
  Serious: Yes (Other)
  Sender: FDA-Public Use
  Company Number: ZA-TAKEDA-2016TUS023454

PATIENT

DRUGS (1)
  1. COLCHICINE. [Suspect]
     Active Substance: COLCHICINE
     Indication: PERICARDITIS TUBERCULOUS
     Dosage: 1 MG, QD
     Route: 065

REACTIONS (2)
  - Hepatitis [Recovering/Resolving]
  - Off label use [Recovered/Resolved]
